FAERS Safety Report 18599604 (Version 1)
Quarter: 2020Q4

REPORT INFORMATION
  Report Type: Spontaneous
  Country: AT (occurrence: AT)
  Receive Date: 20201210
  Receipt Date: 20201210
  Transmission Date: 20210114
  Serious: Yes (Hospitalization, Other)
  Sender: FDA-Public Use
  Company Number: AT-ABBVIE-20K-009-3679374-00

PATIENT
  Age: 27 Year
  Sex: Female

DRUGS (5)
  1. HUMIRA [Suspect]
     Active Substance: ADALIMUMAB
     Route: 058
  2. PREDNISOLONE. [Concomitant]
     Active Substance: PREDNISOLONE
     Indication: PRODUCT USED FOR UNKNOWN INDICATION
     Dosage: 50MG PER DAY, TAPERED BY 5MG PER WEEK
  3. HUMIRA [Suspect]
     Active Substance: ADALIMUMAB
     Route: 058
  4. HUMIRA [Suspect]
     Active Substance: ADALIMUMAB
     Indication: CROHN^S DISEASE
     Dosage: 80MG-40MG-40MG HUMIRA INDUCTION DOSING SCHEME
     Route: 058
  5. AZATHIOPRIN [Concomitant]
     Active Substance: AZATHIOPRINE
     Indication: PRODUCT USED FOR UNKNOWN INDICATION
     Dosage: STARTING DOSE: 50MG, TARGET DOSE: 100MG (WITH BODY WEIGHT OF 45KG)

REACTIONS (11)
  - Intentional product misuse [Unknown]
  - Acute abdomen [Recovered/Resolved]
  - Ileostomy [Recovered/Resolved]
  - Ileus [Recovered/Resolved]
  - Iron deficiency [Unknown]
  - Abdominal wound dehiscence [Unknown]
  - Drug ineffective [Recovered/Resolved]
  - Iron deficiency [Not Recovered/Not Resolved]
  - Crohn^s disease [Recovered/Resolved]
  - Anastomotic complication [Unknown]
  - Infertility female [Not Recovered/Not Resolved]
